FAERS Safety Report 20653612 (Version 1)
Quarter: 2022Q1

REPORT INFORMATION
  Report Type: Spontaneous
  Country: US (occurrence: None)
  Receive Date: 20220329
  Receipt Date: 20220329
  Transmission Date: 20220423
  Serious: Yes (Life-Threatening)
  Sender: FDA-Public Use
  Company Number: None

PATIENT
  Age: 5 Year
  Sex: Male

DRUGS (6)
  1. SINGULAIR [Suspect]
     Active Substance: MONTELUKAST SODIUM
     Indication: Asthma
     Dates: start: 20161209, end: 20190318
  2. SINGULAIR [Suspect]
     Active Substance: MONTELUKAST SODIUM
     Indication: Multiple allergies
  3. VITAMINS [Concomitant]
     Active Substance: VITAMINS
  4. PROBIOTICS NOS [Concomitant]
     Active Substance: PROBIOTICS NOS
  5. XYZAL [Concomitant]
     Active Substance: LEVOCETIRIZINE DIHYDROCHLORIDE
  6. GABA [Concomitant]
     Active Substance: HOMEOPATHICS

REACTIONS (8)
  - Enuresis [None]
  - Hallucination [None]
  - Sleep terror [None]
  - Anxiety [None]
  - Anger [None]
  - Affect lability [None]
  - Suicidal ideation [None]
  - Intentional self-injury [None]

NARRATIVE: CASE EVENT DATE: 20180316
